FAERS Safety Report 10468220 (Version 7)
Quarter: 2015Q2

REPORT INFORMATION
  Report Type: Report from Study
  Country: US (occurrence: US)
  Receive Date: 20140922
  Receipt Date: 20150623
  Transmission Date: 20150821
  Serious: Yes (Death, Hospitalization, Other)
  Sender: FDA-Public Use
  Company Number: US-ACTELION-A-US2014-104508

PATIENT
  Age: 61 Year
  Sex: Female
  Weight: 90.7 kg

DRUGS (26)
  1. POTASSIUM CHLORIDE. [Concomitant]
     Active Substance: POTASSIUM CHLORIDE
     Dosage: 10 MEQ, QPM
     Dates: start: 200802
  2. LOPRESSOR [Concomitant]
     Active Substance: METOPROLOL TARTRATE
     Indication: HYPERTENSION
     Dosage: 25-50 MG, BID
     Route: 048
     Dates: start: 2008
  3. BERAPROST SODIUM [Suspect]
     Active Substance: BERAPROST SODIUM
     Dosage: UNK
     Route: 065
     Dates: start: 20131225, end: 20140802
  4. SILDENAFIL. [Concomitant]
     Active Substance: SILDENAFIL
     Dosage: 20 UNK, UNK
  5. BUMEX [Concomitant]
     Active Substance: BUMETANIDE
  6. IBUPROFEN. [Concomitant]
     Active Substance: IBUPROFEN
  7. PROMETHAZINE [Concomitant]
     Active Substance: PROMETHAZINE\PROMETHAZINE HYDROCHLORIDE
  8. TRACLEER [Suspect]
     Active Substance: BOSENTAN\BOSENTAN MONOHYDRATE
     Indication: PULMONARY ARTERIAL HYPERTENSION
     Dosage: 125 MG, BID
     Route: 048
     Dates: start: 20131122
  9. TYVASO [Suspect]
     Active Substance: TREPROSTINIL
     Indication: PULMONARY ARTERIAL HYPERTENSION
     Dosage: 90 ?G, QID
     Route: 055
     Dates: start: 20080229, end: 20140803
  10. ALDACTONE [Concomitant]
     Active Substance: SPIRONOLACTONE
     Indication: PULMONARY ARTERIAL HYPERTENSION
     Dosage: 100 MG, BID
     Route: 048
     Dates: start: 20120819
  11. PHENERGAN [Concomitant]
     Active Substance: PROMETHAZINE HYDROCHLORIDE
  12. VELETRI [Suspect]
     Active Substance: EPOPROSTENOL
     Dosage: UNK
     Route: 042
     Dates: start: 20140801
  13. BERAPROST SODIUM [Suspect]
     Active Substance: BERAPROST SODIUM
     Indication: PULMONARY ARTERIAL HYPERTENSION
     Dosage: UNK, QID
     Route: 048
     Dates: start: 20131211, end: 20140802
  14. POTASSIUM CHLORIDE. [Concomitant]
     Active Substance: POTASSIUM CHLORIDE
     Indication: HYPOKALAEMIA
     Dosage: 10 MEQ, QAM
     Dates: start: 200802
  15. SYNTHROID [Concomitant]
     Active Substance: LEVOTHYROXINE SODIUM
     Indication: HYPERTHYROIDISM
     Dosage: 0.137 MG, UNK
     Dates: start: 2010
  16. LASIX [Concomitant]
     Active Substance: FUROSEMIDE
     Dosage: 20 MG, UNK
     Dates: start: 200802
  17. FLONASE [Concomitant]
     Active Substance: FLUTICASONE PROPIONATE
     Dosage: 1 SPRAY, BID
  18. TYVASO [Suspect]
     Active Substance: TREPROSTINIL
     Dosage: 360 UNK, UNK
     Route: 055
  19. METFORMIN [Concomitant]
     Active Substance: METFORMIN HYDROCHLORIDE
     Indication: DIABETES MELLITUS
     Dosage: 1000 MG, QD
     Dates: start: 200802
  20. TYVASO [Suspect]
     Active Substance: TREPROSTINIL
     Dosage: 0.6 UNK, UNK
     Route: 055
     Dates: start: 20080229, end: 20140802
  21. TYVASO [Suspect]
     Active Substance: TREPROSTINIL
     Dosage: 60 MCG, UNK
     Route: 055
     Dates: start: 20121024, end: 20140802
  22. TYVASO [Suspect]
     Active Substance: TREPROSTINIL
     Dosage: 90 MCG, UNK
     Route: 055
     Dates: start: 20121024
  23. SILDENAFIL. [Concomitant]
     Active Substance: SILDENAFIL
     Indication: PULMONARY ARTERIAL HYPERTENSION
     Dosage: 20 MG, Q8H
     Dates: start: 200802
  24. ALLOPURINOL. [Concomitant]
     Active Substance: ALLOPURINOL
     Dosage: 300 MG, QD
  25. VELETRI [Suspect]
     Active Substance: EPOPROSTENOL
     Indication: PULMONARY ARTERIAL HYPERTENSION
     Dosage: 2 NG/KG, PER MIN
     Route: 042
     Dates: start: 20140401
  26. REMODULIN [Suspect]
     Active Substance: TREPROSTINIL
     Indication: PULMONARY ARTERIAL HYPERTENSION
     Dosage: UNK
     Route: 042
     Dates: start: 2014

REACTIONS (28)
  - Right ventricular failure [Not Recovered/Not Resolved]
  - Transfusion [Unknown]
  - Pulmonary arterial hypertension [Fatal]
  - Cardiac arrest [Fatal]
  - Anxiety [Not Recovered/Not Resolved]
  - Respiratory distress [Unknown]
  - Abdominal distension [Unknown]
  - Syncope [Recovering/Resolving]
  - Micturition urgency [Not Recovered/Not Resolved]
  - Haematoma [Unknown]
  - Hyponatraemia [Unknown]
  - Acute kidney injury [Unknown]
  - Hypotension [Unknown]
  - Oedema peripheral [Unknown]
  - Confusional state [Unknown]
  - Swelling face [Unknown]
  - Multiple allergies [Not Recovered/Not Resolved]
  - Thrombocytopenia [Unknown]
  - Hyperthyroidism [Not Recovered/Not Resolved]
  - Cough [Not Recovered/Not Resolved]
  - Fall [Unknown]
  - Hypoxia [Fatal]
  - Fluid overload [Fatal]
  - Haemorrhage [Unknown]
  - Respiratory arrest [Fatal]
  - Fluid retention [Fatal]
  - Nausea [Not Recovered/Not Resolved]
  - Flushing [Unknown]

NARRATIVE: CASE EVENT DATE: 20140730
